FAERS Safety Report 16726527 (Version 1)
Quarter: 2019Q3

REPORT INFORMATION
  Report Type: Spontaneous
  Country: CA (occurrence: CA)
  Receive Date: 20190821
  Receipt Date: 20190821
  Transmission Date: 20191005
  Serious: Yes (Death, Hospitalization)
  Sender: FDA-Public Use
  Company Number: CA-ACTELION-A-NJ2017-160295

PATIENT
  Sex: Female

DRUGS (13)
  1. TRAZODONE [Concomitant]
     Active Substance: TRAZODONE HYDROCHLORIDE
  2. ATORVASTATIN [Concomitant]
     Active Substance: ATORVASTATIN
  3. OPSUMIT [Suspect]
     Active Substance: MACITENTAN
     Indication: PULMONARY ARTERIAL HYPERTENSION
     Dosage: 10 MG, QD
     Route: 048
     Dates: start: 20170810
  4. VITAMIN D [Concomitant]
     Active Substance: VITAMIN D NOS
  5. PANTOPRAZOLE [Concomitant]
     Active Substance: PANTOPRAZOLE
  6. AMLODIPINE [Concomitant]
     Active Substance: AMLODIPINE BESYLATE
  7. COVERSYL [Concomitant]
     Active Substance: PERINDOPRIL
  8. INSULIN [Concomitant]
     Active Substance: INSULIN NOS
  9. PLAVIX [Concomitant]
     Active Substance: CLOPIDOGREL BISULFATE
  10. ADCIRCA [Concomitant]
     Active Substance: TADALAFIL
  11. VITAMIN B12 [Concomitant]
     Active Substance: CYANOCOBALAMIN
  12. SYNTHROID [Concomitant]
     Active Substance: LEVOTHYROXINE SODIUM
  13. FUROSEMIDE. [Concomitant]
     Active Substance: FUROSEMIDE

REACTIONS (5)
  - Migraine [Recovered/Resolved]
  - Death [Fatal]
  - Dyspnoea exertional [Not Recovered/Not Resolved]
  - Nasopharyngitis [Recovering/Resolving]
  - Chest discomfort [Recovering/Resolving]
